FAERS Safety Report 5473489-7 (Version None)
Quarter: 2007Q3

REPORT INFORMATION
  Report Type: 
  Country: None (occurrence: None)
  Receive Date: 20070828
  Receipt Date: 20070508
  Transmission Date: 20080115
  Serious: Yes (Other)
  Sender: FDA-Public Use
  Company Number: 2007024711

PATIENT
  Age: 66 Year
  Sex: Female
  Weight: 52.2 kg

DRUGS (6)
  1. EXUBERA [Suspect]
     Indication: DIABETES MELLITUS
     Dosage: 3 MG (1 MG, 3 IN 1 D)
     Dates: start: 20070316, end: 20070320
  2. INSULIN DETEMIR (INSULIN DETEMIR) [Suspect]
     Indication: DIABETES MELLITUS
     Dosage: OTHER
     Route: 050
  3. INSULIN [Concomitant]
  4. SYNTHROID [Concomitant]
  5. DRUG, UNSPECIFIED (DRUG, UNSPECIFIED) [Concomitant]
  6. AVAPRO [Concomitant]

REACTIONS (4)
  - BLOOD GLUCOSE DECREASED [None]
  - BLOOD GLUCOSE INCREASED [None]
  - DYSPHONIA [None]
  - THROAT IRRITATION [None]
